FAERS Safety Report 4862140-2 (Version None)
Quarter: 2005Q4

REPORT INFORMATION
  Report Type: 
  Country: None (occurrence: None)
  Receive Date: 20051221
  Receipt Date: 20051209
  Transmission Date: 20060501
  Serious: Yes (Other)
  Sender: FDA-Public Use
  Company Number: CA-BRISTOL-MYERS SQUIBB COMPANY-13218177

PATIENT
  Age: 81 Year
  Sex: Female

DRUGS (9)
  1. TEQUIN [Suspect]
     Route: 048
  2. AMLODIPINE [Concomitant]
  3. DEXAMETHASONE [Concomitant]
  4. GLYBURIDE [Concomitant]
  5. GRAVOL TAB [Concomitant]
  6. LASIX [Concomitant]
  7. LOSEC [Concomitant]
  8. MORPHINE [Concomitant]
  9. PERINDOPRIL [Concomitant]

REACTIONS (2)
  - BLOOD GLUCOSE DECREASED [None]
  - BLOOD GLUCOSE INCREASED [None]
